FAERS Safety Report 8266744-9 (Version None)
Quarter: 2012Q2

REPORT INFORMATION
  Report Type: 
  Country: None (occurrence: None)
  Receive Date: 20120409
  Receipt Date: 20120328
  Transmission Date: 20120825
  Serious: No
  Sender: FDA-Public Use
  Company Number: US-BIOGENIDEC-2011BI044920

PATIENT
  Sex: Female

DRUGS (1)
  1. TYSABRI [Suspect]
     Indication: MULTIPLE SCLEROSIS
     Route: 042
     Dates: start: 20111024, end: 20111219

REACTIONS (19)
  - PARAESTHESIA [None]
  - VISUAL IMPAIRMENT [None]
  - FATIGUE [None]
  - FALL [None]
  - BACK PAIN [None]
  - CYSTITIS [None]
  - MOVEMENT DISORDER [None]
  - DRUG INEFFECTIVE [None]
  - MUSCULAR WEAKNESS [None]
  - ABASIA [None]
  - MOBILITY DECREASED [None]
  - GAIT DISTURBANCE [None]
  - NAUSEA [None]
  - BALANCE DISORDER [None]
  - DIZZINESS [None]
  - URTICARIA [None]
  - VESTIBULAR DISORDER [None]
  - BURNING SENSATION [None]
  - RASH [None]
